FAERS Safety Report 23140509 (Version 2)
Quarter: 2023Q4

REPORT INFORMATION
  Report Type: Spontaneous
  Country: US (occurrence: US)
  Receive Date: 20231102
  Receipt Date: 20231117
  Transmission Date: 20240109
  Serious: No
  Sender: FDA-Public Use
  Company Number: US-SANDOZ-SDZ2023US049197

PATIENT
  Sex: Male

DRUGS (1)
  1. RIVASTIGMINE [Suspect]
     Active Substance: RIVASTIGMINE
     Indication: Product used for unknown indication
     Dosage: 9.5MG/24H 30TTSM FREQ=1
     Route: 065

REACTIONS (4)
  - Hypersensitivity [Unknown]
  - Product adhesion issue [Unknown]
  - Irritability [Unknown]
  - Erythema [Unknown]
